FAERS Safety Report 25551381 (Version 1)
Quarter: 2025Q3

REPORT INFORMATION
  Report Type: Report from Study
  Country: US (occurrence: US)
  Receive Date: 20250714
  Receipt Date: 20250714
  Transmission Date: 20251020
  Serious: Yes (Death)
  Sender: PFIZER
  Company Number: US-PFIZER INC-PV202500083214

PATIENT
  Age: 63 Year
  Sex: Male

DRUGS (1)
  1. BRAFTOVI [Suspect]
     Active Substance: ENCORAFENIB
     Indication: Colon cancer metastatic
     Dosage: 4 CAPSULES (300 MG) BY MOUTH 1 TIME A DAY
     Route: 048
     Dates: start: 20250515

REACTIONS (1)
  - Death [Fatal]

NARRATIVE: CASE EVENT DATE: 20250627
